FAERS Safety Report 10181361 (Version 2)
Quarter: 2015Q1

REPORT INFORMATION
  Report Type: Report from Study
  Country: RS (occurrence: RS)
  Receive Date: 20140519
  Receipt Date: 20150325
  Transmission Date: 20150720
  Serious: Yes (Other)
  Sender: FDA-Public Use
  Company Number: RS-ROCHE-1403159

PATIENT
  Sex: Female
  Weight: 65 kg

DRUGS (2)
  1. CAPECITABINE. [Suspect]
     Active Substance: CAPECITABINE
     Indication: RECTAL ADENOCARCINOMA
     Route: 065
     Dates: start: 20070319, end: 20070417
  2. MITOMYCIN C [Suspect]
     Active Substance: MITOMYCIN
     Indication: RECTAL ADENOCARCINOMA
     Route: 065

REACTIONS (2)
  - Diarrhoea [Unknown]
  - Disease progression [Unknown]
